FAERS Safety Report 9466441 (Version 1)
Quarter: 2013Q3

REPORT INFORMATION
  Report Type: Spontaneous
  Country: DE (occurrence: DE)
  Receive Date: 20130820
  Receipt Date: 20130820
  Transmission Date: 20140515
  Serious: Yes (Other)
  Sender: FDA-Public Use
  Company Number: DE-AMGEN-DEUSP2013057394

PATIENT
  Age: 45 Year
  Sex: Male

DRUGS (1)
  1. NPLATE [Suspect]
     Indication: IMMUNE THROMBOCYTOPENIC PURPURA
     Dosage: 1 MUG/KG, UNK
     Route: 065

REACTIONS (4)
  - Deep vein thrombosis [Unknown]
  - Platelet count decreased [Unknown]
  - Photosensitivity reaction [Unknown]
  - Rash [Unknown]
